FAERS Safety Report 9767145 (Version 2)
Quarter: 2014Q1

REPORT INFORMATION
  Report Type: Spontaneous
  Country: US (occurrence: US)
  Receive Date: 20131217
  Receipt Date: 20140115
  Transmission Date: 20141002
  Serious: No
  Sender: FDA-Public Use
  Company Number: US-TEVA-448325USA

PATIENT
  Age: 21 Year
  Sex: Female
  Weight: 59.93 kg

DRUGS (2)
  1. PARAGARD 380A [Suspect]
     Indication: CONTRACEPTION
     Route: 015
     Dates: start: 20131021, end: 20131121
  2. PARAGARD 380A [Suspect]
     Route: 015
     Dates: start: 20131223

REACTIONS (3)
  - Device expulsion [Recovered/Resolved]
  - Pain [Unknown]
  - Metrorrhagia [Recovered/Resolved]
